FAERS Safety Report 13440354 (Version 1)
Quarter: 2017Q2

REPORT INFORMATION
  Report Type: Spontaneous
  Country: US (occurrence: US)
  Receive Date: 20170413
  Receipt Date: 20170413
  Transmission Date: 20170830
  Serious: Yes (Hospitalization, Other)
  Sender: FDA-Public Use
  Company Number: US-ZYDUS-014560

PATIENT
  Age: 49 Year
  Sex: Female

DRUGS (2)
  1. DULOXETINE/DULOXETINE HYDROCHLORIDE [Suspect]
     Active Substance: DULOXETINE HYDROCHLORIDE
     Indication: ANXIETY
     Route: 065
  2. BACLOFEN. [Concomitant]
     Active Substance: BACLOFEN
     Indication: PRODUCT USED FOR UNKNOWN INDICATION
     Route: 037

REACTIONS (6)
  - Dysphagia [Recovering/Resolving]
  - Muscle spasms [Recovering/Resolving]
  - Nystagmus [Recovering/Resolving]
  - Respiratory distress [Recovering/Resolving]
  - Condition aggravated [Recovering/Resolving]
  - Muscle rigidity [Recovering/Resolving]
